FAERS Safety Report 9817644 (Version 2)
Quarter: 2014Q1

REPORT INFORMATION
  Report Type: Spontaneous
  Country: HU (occurrence: HU)
  Receive Date: 20140115
  Receipt Date: 20140115
  Transmission Date: 20141002
  Serious: Yes (Other)
  Sender: FDA-Public Use
  Company Number: HU-009507513-1312HUN008824

PATIENT
  Age: 28 Year
  Sex: Female
  Weight: 50 kg

DRUGS (1)
  1. INTRONA [Suspect]
     Indication: INFECTION PROPHYLAXIS
     Dosage: TOTAL DAILY DOSE 5 MILLION IU, ONCE
     Dates: start: 20131030, end: 20131030

REACTIONS (3)
  - Abortion induced [Unknown]
  - Exposure during pregnancy [Recovered/Resolved]
  - Off label use [Unknown]
